FAERS Safety Report 4729178-7 (Version None)
Quarter: 2005Q3

REPORT INFORMATION
  Report Type: 
  Country: None (occurrence: None)
  Receive Date: 20050729
  Receipt Date: 20040622
  Transmission Date: 20060218
  Serious: No
  Sender: FDA-Public Use
  Company Number: US-GLAXOSMITHKLINE-A0515579A

PATIENT
  Age: 52 Year
  Sex: Female
  Weight: 64.1 kg

DRUGS (5)
  1. IMITREX [Suspect]
     Indication: MIGRAINE
     Dosage: 100MG AS REQUIRED
     Route: 048
  2. PREMARIN [Concomitant]
     Dosage: 10MG UNKNOWN
     Route: 065
  3. NORTRIPTYLINE HCL [Concomitant]
  4. EXCEDRIN (MIGRAINE) [Concomitant]
  5. VICODIN [Concomitant]

REACTIONS (4)
  - MIGRAINE [None]
  - NAUSEA [None]
  - PHOTOPHOBIA [None]
  - VOMITING [None]
